FAERS Safety Report 5531545-9 (Version None)
Quarter: 2007Q4

REPORT INFORMATION
  Report Type: 
  Country: None (occurrence: None)
  Receive Date: 20071128
  Receipt Date: 20071128
  Transmission Date: 20080405
  Serious: Yes (Other)
  Sender: FDA-Public Use
  Company Number: None

PATIENT
  Age: 10 Year
  Sex: Female
  Weight: 39.0093 kg

DRUGS (1)
  1. ALDARA [Suspect]
     Indication: SKIN PAPILLOMA
     Dosage: ENOUGH TO COVER WART 1 X DAILY BFR BED TOPICAL 060
     Route: 061
     Dates: start: 20070926, end: 20071007

REACTIONS (3)
  - BLOOD GLUCOSE INCREASED [None]
  - DIABETES MELLITUS INADEQUATE CONTROL [None]
  - INCREASED INSULIN REQUIREMENT [None]
